FAERS Safety Report 5910589-9 (Version None)
Quarter: 2008Q4

REPORT INFORMATION
  Report Type: 
  Country: None (occurrence: None)
  Receive Date: 20081007
  Receipt Date: 20080929
  Transmission Date: 20090506
  Serious: No
  Sender: FDA-Public Use
  Company Number: US-BAYER-200834563NA

PATIENT
  Sex: Male

DRUGS (1)
  1. FLUDARA [Suspect]
     Indication: B-CELL LYMPHOMA
     Dates: start: 20080101

REACTIONS (2)
  - AFFECT LABILITY [None]
  - COGNITIVE DISORDER [None]
